FAERS Safety Report 7285088-5 (Version None)
Quarter: 2011Q1

REPORT INFORMATION
  Report Type: 
  Country: None (occurrence: None)
  Receive Date: 20110210
  Receipt Date: 20110128
  Transmission Date: 20110831
  Serious: No
  Sender: FDA-Public Use
  Company Number: PHHY2011DE06964

PATIENT
  Sex: Female

DRUGS (4)
  1. TASIGNA [Suspect]
     Dosage: 2 DF, BID
  2. TASIGNA [Suspect]
     Indication: CHRONIC MYELOID LEUKAEMIA
     Dosage: 2 DF, QD
     Dates: start: 20101227
  3. TAMOXIFEN CITRATE [Concomitant]
  4. CALCIUM [Concomitant]

REACTIONS (3)
  - RASH [None]
  - FLATULENCE [None]
  - ABDOMINAL DISTENSION [None]
